FAERS Safety Report 9279304 (Version 2)
Quarter: 2014Q1

REPORT INFORMATION
  Report Type: Report from Study
  Country: PR (occurrence: PR)
  Receive Date: 20130508
  Receipt Date: 20140120
  Transmission Date: 20141002
  Serious: Yes (Death, Other)
  Sender: FDA-Public Use
  Company Number: PR-ALEXION PHARMACEUTICALS INC.-A201300968

PATIENT
  Age: 16 Year
  Sex: Male
  Weight: 61 kg

DRUGS (2)
  1. SOLIRIS [Suspect]
     Indication: HAEMOLYTIC URAEMIC SYNDROME
     Dosage: 900 MG, UNK X 4
     Route: 042
     Dates: start: 20130316
  2. SOLIRIS [Suspect]
     Dosage: 1200 MG, UNK
     Dates: start: 20130417

REACTIONS (7)
  - Graft versus host disease [Fatal]
  - Klebsiella sepsis [Unknown]
  - Pulmonary haemorrhage [Unknown]
  - Pneumothorax [Unknown]
  - Plasmapheresis [Unknown]
  - Herpes virus infection [Unknown]
  - Fluid overload [Unknown]
